FAERS Safety Report 6779477-2 (Version None)
Quarter: 2010Q2

REPORT INFORMATION
  Report Type: 
  Country: None (occurrence: None)
  Receive Date: 20100618
  Receipt Date: 20100609
  Transmission Date: 20101027
  Serious: Yes (Other)
  Sender: FDA-Public Use
  Company Number: GXKR2010CH06403

PATIENT
  Sex: Male

DRUGS (1)
  1. CETALLERG (NGX) [Suspect]
     Dosage: 10 MG/DAY
     Route: 048

REACTIONS (1)
  - MULTIPLE SCLEROSIS [None]
